FAERS Safety Report 16385207 (Version 1)
Quarter: 2019Q2

REPORT INFORMATION
  Report Type: Spontaneous
  Country: US (occurrence: US)
  Receive Date: 20190603
  Receipt Date: 20190603
  Transmission Date: 20190711
  Serious: Yes (Death, Hospitalization, Other)
  Sender: FDA-Public Use
  Company Number: US-SUNOVION-2019SUN002297

PATIENT
  Age: 81 Year
  Sex: Female

DRUGS (2)
  1. LATUDA [Suspect]
     Active Substance: LURASIDONE HYDROCHLORIDE
     Indication: MAJOR DEPRESSION
     Dosage: 20 MG
     Route: 048
     Dates: end: 20180716
  2. SERTRALINE [Concomitant]
     Active Substance: SERTRALINE HYDROCHLORIDE
     Dosage: 200 MG
     Route: 065

REACTIONS (5)
  - Aplastic anaemia [Fatal]
  - Asthenia [Fatal]
  - Full blood count decreased [Fatal]
  - Off label use [Unknown]
  - Thrombocytopenia [Fatal]
